FAERS Safety Report 7125856-3 (Version None)
Quarter: 2010Q4

REPORT INFORMATION
  Report Type: 
  Country: None (occurrence: None)
  Receive Date: 20101129
  Receipt Date: 20101115
  Transmission Date: 20110411
  Serious: Yes (Other)
  Sender: FDA-Public Use
  Company Number: JP-ELI_LILLY_AND_COMPANY-JP201010005401

PATIENT
  Age: 32 Year
  Sex: Male

DRUGS (8)
  1. CYMBALTA [Suspect]
     Indication: DEPRESSION
     Dosage: 20 MG, DAILY (1/D)
     Route: 048
     Dates: start: 20100514, end: 20100520
  2. CYMBALTA [Suspect]
     Dosage: 40 MG, DAILY (1/D)
     Route: 048
     Dates: start: 20100521, end: 20100603
  3. CYMBALTA [Suspect]
     Dosage: 50 MG, DAILY (1/D)
     Route: 048
     Dates: start: 20100604, end: 20100617
  4. CYMBALTA [Suspect]
     Dosage: 60 MG, DAILY (1/D)
     Route: 048
     Dates: start: 20100618, end: 20100927
  5. LIMAS [Concomitant]
     Indication: PROPHYLAXIS
     Dosage: 400-600MG, DAILY (1/D)
     Route: 048
     Dates: start: 20090904, end: 20100927
  6. ABILIFY [Concomitant]
     Dosage: 1.5-3MG, DAILY (1/D)
     Route: 048
     Dates: start: 20080711, end: 20100927
  7. RESLIN [Concomitant]
     Dosage: 25-75MG, DAILY (1/D)
     Route: 048
     Dates: start: 20080905, end: 20100927
  8. MYSLEE [Concomitant]
     Dosage: 10 MG, DAILY (1/D)
     Dates: start: 20080508, end: 20100927

REACTIONS (1)
  - HEPATIC FUNCTION ABNORMAL [None]
